FAERS Safety Report 24423096 (Version 1)
Quarter: 2024Q4

REPORT INFORMATION
  Report Type: Other
  Country: ES (occurrence: ES)
  Receive Date: 20241010
  Receipt Date: 20241010
  Transmission Date: 20250114
  Serious: Yes (Other)
  Sender: EYWA PHARMA
  Company Number: ES-Eywa Pharma Inc.-2162778

PATIENT
  Age: 53 Year
  Sex: Male

DRUGS (9)
  1. VALPROIC ACID [Suspect]
     Active Substance: VALPROIC ACID
     Indication: Bipolar disorder
  2. METRONIDAZOLE [Suspect]
     Active Substance: METRONIDAZOLE
  3. CIPROFLOXACIN [Concomitant]
     Active Substance: CIPROFLOXACIN
  4. LITHIUM [Suspect]
     Active Substance: LITHIUM
  5. OLANZAPINE [Suspect]
     Active Substance: OLANZAPINE
  6. ARIPIPRAZOLE [Suspect]
     Active Substance: ARIPIPRAZOLE
  7. DESVENLAFAXINE [Suspect]
     Active Substance: DESVENLAFAXINE
  8. LORMETAZEPAM [Suspect]
     Active Substance: LORMETAZEPAM
  9. DISULFIRAM [Suspect]
     Active Substance: DISULFIRAM

REACTIONS (5)
  - Toxic encephalopathy [Recovered/Resolved]
  - Product use in unapproved indication [Unknown]
  - Treatment noncompliance [Unknown]
  - Confusional state [Recovered/Resolved]
  - Generalised tonic-clonic seizure [Recovered/Resolved]
